FAERS Safety Report 6456661-9 (Version None)
Quarter: 2009Q4

REPORT INFORMATION
  Report Type: 
  Country: None (occurrence: None)
  Receive Date: 20091125
  Receipt Date: 20081013
  Transmission Date: 20100525
  Serious: No
  Sender: FDA-Public Use
  Company Number: A0751784A

PATIENT
  Sex: Male

DRUGS (2)
  1. LANOXIN [Suspect]
     Indication: DRUG USE FOR UNKNOWN INDICATION
     Dosage: .25MG PER DAY
     Route: 048
     Dates: start: 20070101
  2. NO CONCURRENT MEDICATION [Concomitant]

REACTIONS (1)
  - RASH [None]
